FAERS Safety Report 8309108-1 (Version None)
Quarter: 2012Q2

REPORT INFORMATION
  Report Type: 
  Country: None (occurrence: None)
  Receive Date: 20120424
  Receipt Date: 20120418
  Transmission Date: 20120825
  Serious: Yes (Other)
  Sender: FDA-Public Use
  Company Number: SE-PFIZER INC-2012094317

PATIENT
  Sex: Female

DRUGS (2)
  1. LYRICA [Suspect]
     Dosage: 75 MG, 2X/DAY
     Route: 048
     Dates: start: 20070101
  2. CYMBALTA [Suspect]
     Dosage: 60 MG, 1X/DAY
     Route: 048
     Dates: start: 20070101

REACTIONS (18)
  - HYPOKINESIA [None]
  - ERYTHEMA [None]
  - PHOTOSENSITIVITY REACTION [None]
  - SEXUAL DYSFUNCTION [None]
  - HYPERHIDROSIS [None]
  - DYSGRAPHIA [None]
  - HYPERACUSIS [None]
  - LACRIMATION INCREASED [None]
  - COLD SWEAT [None]
  - AMNESIA [None]
  - SKIN SENSITISATION [None]
  - MENTAL IMPAIRMENT [None]
  - ABDOMINAL DISTENSION [None]
  - SALIVARY HYPERSECRETION [None]
  - PERIPHERAL COLDNESS [None]
  - SNORING [None]
  - APHASIA [None]
  - HYPOTENSION [None]
